FAERS Safety Report 8518681-X (Version None)
Quarter: 2012Q3

REPORT INFORMATION
  Report Type: 
  Country: None (occurrence: None)
  Receive Date: 20120718
  Receipt Date: 20110606
  Transmission Date: 20120928
  Serious: No
  Sender: FDA-Public Use
  Company Number: US-BRISTOL-MYERS SQUIBB COMPANY-15806409

PATIENT
  Age: 52 Year
  Sex: Female

DRUGS (17)
  1. COUMADIN [Suspect]
  2. ALDACTONE [Concomitant]
  3. CRESTOR [Concomitant]
  4. IMDUR [Concomitant]
  5. TORSEMIDE [Concomitant]
  6. COREG [Concomitant]
  7. KLONOPIN [Concomitant]
  8. NITROGLYCERIN [Concomitant]
  9. FLEXERIL [Concomitant]
  10. TOPAMAX [Concomitant]
  11. PLAVIX [Concomitant]
  12. TRAZODONE HCL [Concomitant]
  13. VICODIN [Concomitant]
  14. RANEXA [Concomitant]
  15. DALMANE [Concomitant]
  16. ZETIA [Concomitant]
  17. WELLBUTRIN [Concomitant]

REACTIONS (3)
  - FATIGUE [None]
  - HEADACHE [None]
  - MYALGIA [None]
